FAERS Safety Report 23647785 (Version 8)
Quarter: 2025Q1

REPORT INFORMATION
  Report Type: Spontaneous
  Country: US (occurrence: US)
  Receive Date: 20240319
  Receipt Date: 20250102
  Transmission Date: 20250408
  Serious: No
  Sender: PFIZER
  Company Number: US-PFIZER INC-PV202300131964

PATIENT
  Age: 81 Year
  Sex: Female
  Weight: 80.28 kg

DRUGS (5)
  1. BRAFTOVI [Suspect]
     Active Substance: ENCORAFENIB
     Indication: Lung neoplasm malignant
     Dosage: 300 MG, 1X/DAY (TAKE ONCE A DAY)
     Route: 048
  2. BRAFTOVI [Suspect]
     Active Substance: ENCORAFENIB
     Dosage: 300 MG, DAILY (TAKE 4 CAPSULES 300 MG TOTAL DAILY MORNING)
     Route: 048
  3. BRAFTOVI [Suspect]
     Active Substance: ENCORAFENIB
     Dosage: 375 MG, DAILY, (TAKE 5 CAPSULES 375 MG TOTAL DAILY)
     Route: 048
  4. BRAFTOVI [Suspect]
     Active Substance: ENCORAFENIB
     Dosage: 300 MG, DAILY (TAKE 4 CAPSULES 300 MG TOTAL DAILY)
     Route: 048
  5. MEKTOVI [Suspect]
     Active Substance: BINIMETINIB
     Indication: Lung neoplasm malignant
     Dosage: 30 MG, 2X/DAY (TAKE TWO TIMES A DAY, 12 HOURS APART/30 MG IN THE A.M, AND 30 MG IN THE P.M.)
     Route: 048

REACTIONS (2)
  - Peripheral coldness [Unknown]
  - Hypoaesthesia [Unknown]
